FAERS Safety Report 4283462-2 (Version None)
Quarter: 2004Q1

REPORT INFORMATION
  Report Type: 
  Country: None (occurrence: None)
  Receive Date: 20040120
  Receipt Date: 20030731
  Transmission Date: 20041129
  Serious: Yes (Other)
  Sender: FDA-Public Use
  Company Number: US-JNJFOC-20030800701

PATIENT
  Age: 29 Year
  Sex: Female
  Weight: 89.3586 kg

DRUGS (1)
  1. PARAGARD (INTRAUTERINE CONTRACEPTIVE DEVICE) INTRAUTERINE DEVICE [Suspect]
     Indication: CONTRACEPTION
     Dates: start: 20030725, end: 20030730

REACTIONS (2)
  - IUCD COMPLICATION [None]
  - UTERINE HAEMORRHAGE [None]
